FAERS Safety Report 11297896 (Version 1)
Quarter: 2015Q3

REPORT INFORMATION
  Report Type: Spontaneous
  Country: US (occurrence: US)
  Receive Date: 20150722
  Receipt Date: 20150722
  Transmission Date: 20151125
  Serious: No
  Sender: FDA-Public Use
  Company Number: US-ELI_LILLY_AND_COMPANY-US201008004607

PATIENT
  Sex: Female

DRUGS (2)
  1. HUMATROPE [Suspect]
     Active Substance: SOMATROPIN
     Dosage: 0.8 MG, UNKNOWN
  2. HUMATROPE [Suspect]
     Active Substance: SOMATROPIN
     Dosage: 1 MG, UNKNOWN

REACTIONS (3)
  - Malaise [Unknown]
  - Insulin-like growth factor increased [Unknown]
  - Fatigue [Unknown]

NARRATIVE: CASE EVENT DATE: 201006
